FAERS Safety Report 9565819 (Version 1)
Quarter: 2013Q3

REPORT INFORMATION
  Report Type: Spontaneous
  Country: BR (occurrence: BR)
  Receive Date: 20130930
  Receipt Date: 20130930
  Transmission Date: 20140515
  Serious: Yes (Hospitalization, Other)
  Sender: FDA-Public Use
  Company Number: PHHY2013BR107456

PATIENT
  Age: 22 Year
  Sex: Female

DRUGS (5)
  1. SIRDALUD [Suspect]
     Indication: MUSCLE SPASTICITY
     Dosage: 4 DF (2 MG), DAILY
     Route: 048
  2. DIAZEPAM [Suspect]
     Indication: MUSCLE SPASTICITY
  3. BACLOFEN [Suspect]
     Indication: MUSCLE SPASTICITY
  4. DOMPERIDONE [Suspect]
     Indication: GASTROOESOPHAGEAL REFLUX DISEASE
  5. OMEPRAZOLE [Suspect]
     Indication: GASTROOESOPHAGEAL REFLUX DISEASE

REACTIONS (4)
  - Gastrooesophageal reflux disease [Recovered/Resolved]
  - Aspiration [Unknown]
  - Pneumonia [Recovered/Resolved]
  - Vomiting [Recovered/Resolved]
